FAERS Safety Report 17289396 (Version 1)
Quarter: 2020Q1

REPORT INFORMATION
  Report Type: Other
  Country: US (occurrence: US)
  Receive Date: 20200120
  Receipt Date: 20200120
  Transmission Date: 20200409
  Serious: Yes (Hospitalization, Other)
  Sender: FDA-Public Use
  Company Number: US-AMAG PHARMACEUTICALS, INC.-AMAG202000241

PATIENT
  Age: 37 Year
  Sex: Female

DRUGS (4)
  1. DROSPIRENONE-ETHINYL ESTRADIOL [Concomitant]
     Active Substance: DROSPIRENONE\ETHINYL ESTRADIOL
     Indication: PRODUCT USED FOR UNKNOWN INDICATION
     Dosage: 3 MG - 0.02 MG TABLET
     Route: 048
  2. MAKENA [Suspect]
     Active Substance: HYDROXYPROGESTERONE CAPROATE
     Indication: PREMATURE DELIVERY
     Route: 058
     Dates: start: 20190830
  3. CITRANATAL HARMONY [Concomitant]
     Active Substance: .ALPHA.-TOCOPHEROL, DL-\CALCIUM CITRATE\CHOLECALCIFEROL\DOCONEXENT\DOCUSATE SODIUM\FOLIC ACID\IRON PENTACARBONYL\PYRIDOXINE HYDROCHLORIDE
     Indication: PREGNANCY
     Dosage: 29 MG IRON- 1MG-50MG- 265 MG CAPSULE
     Route: 048
  4. ASA [Concomitant]
     Active Substance: ASPIRIN
     Indication: PRODUCT USED FOR UNKNOWN INDICATION

REACTIONS (3)
  - Product administration error [Unknown]
  - Premature delivery [Recovered/Resolved]
  - Upper respiratory tract infection [Unknown]

NARRATIVE: CASE EVENT DATE: 20190830
